FAERS Safety Report 23471355 (Version 4)
Quarter: 2024Q4

REPORT INFORMATION
  Report Type: Report from Study
  Country: US (occurrence: US)
  Receive Date: 20240202
  Receipt Date: 20241219
  Transmission Date: 20250115
  Serious: Yes (Hospitalization, Other)
  Sender: TAKEDA
  Company Number: US-TAKEDA-2023TUS069984

PATIENT
  Age: 69 Year
  Sex: Female

DRUGS (1)
  1. BRIGATINIB [Suspect]
     Active Substance: BRIGATINIB
     Indication: Lung neoplasm malignant
     Dosage: 180 MILLIGRAM, QD
     Dates: start: 20230704

REACTIONS (15)
  - Fractured coccyx [Recovering/Resolving]
  - Fall [Unknown]
  - Gallbladder obstruction [Unknown]
  - Gallbladder enlargement [Recovered/Resolved]
  - Diarrhoea [Unknown]
  - Nausea [Recovering/Resolving]
  - Dizziness [Not Recovered/Not Resolved]
  - Cough [Recovering/Resolving]
  - Muscle spasms [Not Recovered/Not Resolved]
  - Head injury [Recovered/Resolved]
  - Ligament sprain [Recovered/Resolved]
  - Bladder dilatation [Unknown]
  - Cholelithiasis [Unknown]
  - Dizziness postural [Unknown]
  - Stress [Unknown]

NARRATIVE: CASE EVENT DATE: 20230704
